FAERS Safety Report 6139947-7 (Version None)
Quarter: 2009Q2

REPORT INFORMATION
  Report Type: 
  Country: None (occurrence: None)
  Receive Date: 20090401
  Receipt Date: 20090326
  Transmission Date: 20091009
  Serious: Yes (Hospitalization, Other)
  Sender: FDA-Public Use
  Company Number: US-ELI_LILLY_AND_COMPANY-US200903006731

PATIENT
  Sex: Male
  Weight: 113.83 kg

DRUGS (12)
  1. BYETTA [Suspect]
     Indication: TYPE 2 DIABETES MELLITUS
     Dosage: 5 UG, 2/D
     Route: 058
     Dates: start: 20050101, end: 20050101
  2. BYETTA [Suspect]
     Dosage: 10 UG, 2/D
     Route: 058
     Dates: start: 20050101
  3. AVANDIA [Concomitant]
     Indication: TYPE 2 DIABETES MELLITUS
  4. METFORMIN HCL [Concomitant]
     Indication: TYPE 2 DIABETES MELLITUS
  5. GLIPIZIDE [Concomitant]
     Indication: TYPE 2 DIABETES MELLITUS
  6. PRILOSEC [Concomitant]
     Indication: ERUCTATION
  7. PANTOPRAZOLE SODIUM [Concomitant]
     Indication: ERUCTATION
  8. PLAVIX [Concomitant]
     Indication: CARDIAC DISORDER
  9. ASPIRIN [Concomitant]
     Indication: CARDIAC DISORDER
     Dosage: 81 MG, UNK
  10. CARVEDILOL [Concomitant]
     Indication: CARDIAC DISORDER
  11. ALTACE [Concomitant]
     Indication: CARDIAC DISORDER
  12. TRICOR [Concomitant]
     Indication: CARDIAC DISORDER

REACTIONS (10)
  - ABDOMINAL DISCOMFORT [None]
  - BLOOD GLUCOSE INCREASED [None]
  - CATHETERISATION CARDIAC [None]
  - CEREBROVASCULAR ACCIDENT [None]
  - CORONARY ARTERY BYPASS [None]
  - GALLBLADDER DISORDER [None]
  - MACULAR DEGENERATION [None]
  - NAUSEA [None]
  - PAIN [None]
  - VISION BLURRED [None]
